FAERS Safety Report 21960585 (Version 1)
Quarter: 2023Q1

REPORT INFORMATION
  Report Type: Spontaneous
  Country: JP (occurrence: JP)
  Receive Date: 20230207
  Receipt Date: 20230207
  Transmission Date: 20230417
  Serious: Yes (Hospitalization, Other)
  Sender: FDA-Public Use
  Company Number: JP-MTPC-MTPC2023-0002838

PATIENT
  Age: 63 Year

DRUGS (2)
  1. EDARAVONE [Suspect]
     Active Substance: EDARAVONE
     Indication: Amyotrophic lateral sclerosis
     Dosage: UNK
     Route: 041
  2. RILUZOLE [Concomitant]
     Active Substance: RILUZOLE
     Route: 048

REACTIONS (7)
  - Respiratory failure [Unknown]
  - Dysphagia [Unknown]
  - Aspiration [Unknown]
  - Atypical mycobacterial infection [Recovered/Resolved]
  - Muscle spasms [Unknown]
  - Quadriplegia [Unknown]
  - Pyrexia [Recovered/Resolved]
